FAERS Safety Report 4505022-8 (Version None)
Quarter: 2005Q1

REPORT INFORMATION
  Report Type: 
  Country: None (occurrence: None)
  Receive Date: 20041015
  Receipt Date: 20030820
  Transmission Date: 20050727
  Serious: Yes (Other)
  Sender: FDA-Public Use
  Company Number: 2003035281

PATIENT
  Sex: Female
  Weight: 61.2356 kg

DRUGS (4)
  1. NEURONTIN [Suspect]
     Indication: MIGRAINE
     Dosage: 300 MG TID ORAL
     Route: 048
     Dates: start: 20030224
  2. ESCITALOPRAM (ESCITALOPRAM) [Suspect]
     Indication: DEPRESSION
     Dosage: 10 MG DAILY
     Dates: start: 20030201
  3. METHYLPHENIDATE HCL [Concomitant]
  4. ORAL CONTRACEPTIVES NOS [Concomitant]

REACTIONS (3)
  - CATARACT [None]
  - DEPRESSION [None]
  - VISION BLURRED [None]
